FAERS Safety Report 21800106 (Version 1)
Quarter: 2022Q4

REPORT INFORMATION
  Report Type: Spontaneous
  Country: US (occurrence: US)
  Receive Date: 20221230
  Receipt Date: 20221230
  Transmission Date: 20230113
  Serious: No
  Sender: FDA-Public Use
  Company Number: US-SA-SAC20221229000754

PATIENT
  Sex: Female
  Weight: 79.3 kg

DRUGS (9)
  1. DUPIXENT [Suspect]
     Active Substance: DUPILUMAB
     Indication: Acne
     Dosage: 300 MG, QOW
     Route: 058
  2. DUPIXENT [Suspect]
     Active Substance: DUPILUMAB
     Indication: Tinea versicolour
  3. DUPIXENT [Suspect]
     Active Substance: DUPILUMAB
     Indication: Dyshidrotic eczema
  4. DIFLUCAN [Concomitant]
     Active Substance: FLUCONAZOLE
  5. PIMECROLIMUS [Concomitant]
     Active Substance: PIMECROLIMUS
  6. CLINDAMYCIN PHOSPHATE [Concomitant]
     Active Substance: CLINDAMYCIN PHOSPHATE
  7. DOXYCYCLINE HYCLATE [Concomitant]
     Active Substance: DOXYCYCLINE HYCLATE
  8. TRETINOIN [Concomitant]
     Active Substance: TRETINOIN
  9. BETAMETHASONE [Concomitant]
     Active Substance: BETAMETHASONE

REACTIONS (3)
  - Symptom recurrence [Unknown]
  - Inappropriate schedule of product administration [Unknown]
  - Product use in unapproved indication [Unknown]
